FAERS Safety Report 19799063 (Version 1)
Quarter: 2021Q3

REPORT INFORMATION
  Report Type: Spontaneous
  Country: CN (occurrence: CN)
  Receive Date: 20210907
  Receipt Date: 20210907
  Transmission Date: 20211014
  Serious: Yes (Other)
  Sender: FDA-Public Use
  Company Number: CN-BAYER-2021-203635

PATIENT
  Age: 10 Year
  Sex: Female
  Weight: 40 kg

DRUGS (1)
  1. YAZ [Suspect]
     Active Substance: DROSPIRENONE\ETHINYL ESTRADIOL
     Indication: ABNORMAL UTERINE BLEEDING
     Dosage: 1 DF, BID
     Route: 048
     Dates: start: 20210726, end: 20210728

REACTIONS (7)
  - Supraventricular extrasystoles [Recovering/Resolving]
  - Nausea [Recovering/Resolving]
  - Off label use [None]
  - Liver injury [None]
  - Chest discomfort [Recovering/Resolving]
  - Ventricular extrasystoles [Recovering/Resolving]
  - Palpitations [Recovering/Resolving]

NARRATIVE: CASE EVENT DATE: 20210726
